FAERS Safety Report 16086909 (Version 2)
Quarter: 2019Q2

REPORT INFORMATION
  Report Type: Spontaneous
  Country: JP (occurrence: JP)
  Receive Date: 20190318
  Receipt Date: 20190409
  Transmission Date: 20190711
  Serious: Yes (Hospitalization, Other)
  Sender: FDA-Public Use
  Company Number: JP-B.I. PHARMACEUTICALS,INC./RIDGEFIELD-2019-NB-001211

PATIENT
  Age: 73 Year
  Sex: Male

DRUGS (3)
  1. GILOTRIF [Suspect]
     Active Substance: AFATINIB
     Indication: LUNG ADENOCARCINOMA
     Route: 048
  2. GILOTRIF [Suspect]
     Active Substance: AFATINIB
     Route: 048
  3. GILOTRIF [Suspect]
     Active Substance: AFATINIB
     Route: 048

REACTIONS (4)
  - Acute kidney injury [Unknown]
  - Diarrhoea [Unknown]
  - Malignant neoplasm progression [Unknown]
  - Diarrhoea [Recovered/Resolved]
